FAERS Safety Report 10008524 (Version 3)
Quarter: 2014Q2

REPORT INFORMATION
  Report Type: Report from Study
  Country: US (occurrence: US)
  Receive Date: 20140313
  Receipt Date: 20140402
  Transmission Date: 20141212
  Serious: Yes (Other)
  Sender: FDA-Public Use
  Company Number: US-ACTELION-A-NJ2013-89993

PATIENT
  Age: 58 Year
  Sex: Female

DRUGS (6)
  1. TRACLEER [Suspect]
     Indication: PULMONARY ARTERIAL HYPERTENSION
     Dosage: UNK
     Route: 048
     Dates: start: 2008, end: 20140113
  2. PLAVIX [Concomitant]
  3. DILTIAZEM [Concomitant]
  4. SYNTHROID [Concomitant]
  5. SILDENAFIL [Concomitant]
  6. LASIX [Concomitant]

REACTIONS (5)
  - Coronary arterial stent insertion [Unknown]
  - Urinary tract infection [Unknown]
  - Klebsiella test positive [Unknown]
  - Renal impairment [Unknown]
  - Blood alkaline phosphatase increased [Unknown]
